FAERS Safety Report 7957131-9 (Version None)
Quarter: 2011Q4

REPORT INFORMATION
  Report Type: 
  Country: None (occurrence: None)
  Receive Date: 20111205
  Receipt Date: 20111125
  Transmission Date: 20120403
  Serious: Yes (Other)
  Sender: FDA-Public Use
  Company Number: IN-ABBOTT-11P-078-0854557-00

PATIENT
  Sex: Male

DRUGS (7)
  1. RIFABUTIN [Concomitant]
     Indication: ANTIBIOTIC PROPHYLAXIS
     Dates: start: 20110305, end: 20110909
  2. SULFAMETHOXAZOLE AND TRIMETHOPRIM [Concomitant]
     Indication: ANTIFUNGAL PROPHYLAXIS
     Dates: start: 20080430, end: 20110818
  3. ISONIAZID [Concomitant]
     Indication: ANTIBIOTIC PROPHYLAXIS
     Dates: start: 20110216, end: 20110909
  4. EMTRICITABINE [Concomitant]
     Indication: HIV INFECTION
     Dates: start: 20110307, end: 20110819
  5. COBADEX [Concomitant]
     Indication: VITAMIN SUPPLEMENTATION
     Dates: start: 20080430
  6. TENOFOVIR [Concomitant]
     Indication: HIV INFECTION
     Dates: start: 20110307, end: 20110819
  7. KALETRA [Suspect]
     Indication: HIV INFECTION
     Route: 048
     Dates: start: 20110307, end: 20110909

REACTIONS (1)
  - RENAL FAILURE [None]
